FAERS Safety Report 4728938-6 (Version None)
Quarter: 2005Q3

REPORT INFORMATION
  Report Type: 
  Country: None (occurrence: None)
  Receive Date: 20050729
  Receipt Date: 20050523
  Transmission Date: 20060218
  Serious: No
  Sender: FDA-Public Use
  Company Number: US-GLAXOSMITHKLINE-A0559749A

PATIENT
  Sex: Female

DRUGS (4)
  1. IMITREX [Suspect]
     Indication: MIGRAINE
     Dosage: 50MG VARIABLE DOSE
     Route: 048
     Dates: start: 20010101
  2. MOTRIN [Concomitant]
  3. EXCEDRIN (MIGRAINE) [Concomitant]
  4. UNKNOWN MEDICATION [Concomitant]
     Route: 065

REACTIONS (1)
  - HEADACHE [None]
